FAERS Safety Report 15575365 (Version 3)
Quarter: 2022Q2

REPORT INFORMATION
  Report Type: Spontaneous
  Country: US (occurrence: US)
  Receive Date: 20181101
  Receipt Date: 20220606
  Transmission Date: 20220720
  Serious: Yes (Other)
  Sender: FDA-Public Use
  Company Number: US-PFIZER INC-2018446266

PATIENT
  Age: 35 Year
  Sex: Female

DRUGS (12)
  1. CABERGOLINE [Suspect]
     Active Substance: CABERGOLINE
     Indication: Pituitary tumour benign
     Dosage: UNK, CYCLIC (DISCONTINUED AFTER FOUR CYCLES)
  2. CABERGOLINE [Suspect]
     Active Substance: CABERGOLINE
     Indication: Pituitary-dependent Cushing^s syndrome
  3. CAPECITABINE [Suspect]
     Active Substance: CAPECITABINE
     Indication: Pituitary tumour benign
     Dosage: UNK, CYCLIC (DISCONTINUED AFTER FOUR CYCLES)
  4. CAPECITABINE [Suspect]
     Active Substance: CAPECITABINE
     Indication: Pituitary-dependent Cushing^s syndrome
  5. PASIREOTIDE [Suspect]
     Active Substance: PASIREOTIDE
     Indication: Pituitary tumour benign
     Dosage: UNK, CYCLIC (DISCONTINUED AFTER FOUR CYCLES)
  6. PASIREOTIDE [Suspect]
     Active Substance: PASIREOTIDE
     Indication: Pituitary-dependent Cushing^s syndrome
  7. PASIREOTIDE [Suspect]
     Active Substance: PASIREOTIDE
     Indication: Hormone level abnormal
  8. KETOCONAZOLE [Suspect]
     Active Substance: KETOCONAZOLE
     Indication: Pituitary tumour benign
     Dosage: UNK, CYCLIC (DISCONTINUED AFTER FOUR CYCLES)
  9. KETOCONAZOLE [Suspect]
     Active Substance: KETOCONAZOLE
     Indication: Pituitary-dependent Cushing^s syndrome
  10. KETOCONAZOLE [Suspect]
     Active Substance: KETOCONAZOLE
     Indication: Hormone level abnormal
  11. TEMOZOLOMIDE [Suspect]
     Active Substance: TEMOZOLOMIDE
     Indication: Pituitary tumour benign
     Dosage: UNK, CYCLIC (DISCONTINUED AFTER FOUR CYCLES)
  12. TEMOZOLOMIDE [Suspect]
     Active Substance: TEMOZOLOMIDE
     Indication: Pituitary-dependent Cushing^s syndrome

REACTIONS (2)
  - Thrombocytopenia [Unknown]
  - Drug intolerance [Unknown]
